FAERS Safety Report 4403760-9 (Version None)
Quarter: 2004Q3

REPORT INFORMATION
  Report Type: 
  Country: None (occurrence: None)
  Receive Date: 20040719
  Receipt Date: 20040712
  Transmission Date: 20050211
  Serious: Yes (Other)
  Sender: FDA-Public Use
  Company Number: 2004046735

PATIENT
  Age: 51 Year
  Sex: Female
  Weight: 71.6683 kg

DRUGS (2)
  1. ROGAINE [Suspect]
     Dosage: TOPICAL
     Route: 061
     Dates: start: 20030701
  2. RAMIPRIL [Concomitant]

REACTIONS (1)
  - BREAST CANCER [None]
